FAERS Safety Report 8643019 (Version 6)
Quarter: 2014Q1

REPORT INFORMATION
  Report Type: Spontaneous
  Country: US (occurrence: US)
  Receive Date: 20120629
  Receipt Date: 20140203
  Transmission Date: 20141002
  Serious: Yes (Other)
  Sender: FDA-Public Use
  Company Number: US-GLAXOSMITHKLINE-A0950513A

PATIENT
  Age: 59 Year
  Sex: Male

DRUGS (1)
  1. VENTOLIN HFA [Suspect]
     Indication: ASTHMA
     Dosage: 90MCG UNKNOWN
     Route: 055
     Dates: start: 20100825

REACTIONS (3)
  - Bladder cancer [Not Recovered/Not Resolved]
  - Overdose [Unknown]
  - Bladder cancer [Not Recovered/Not Resolved]
